FAERS Safety Report 8773302 (Version 1)
Quarter: 2012Q4

REPORT INFORMATION
  Report Type: 
  Country: FR (occurrence: FR)
  Receive Date: 20120907
  Receipt Date: 20120907
  Transmission Date: 20130627
  Serious: Yes (Life-Threatening, Hospitalization)
  Sender: FDA-Public Use
  Company Number: FR-ROCHE-1114584

PATIENT
  Age: 23 Year
  Sex: Male

DRUGS (5)
  1. CELLCEPT [Suspect]
     Indication: BONE MARROW TRANSPLANT
     Route: 048
     Dates: start: 20120608, end: 20120628
  2. FLUDARABINE PHOSPHATE [Suspect]
     Indication: BONE MARROW TRANSPLANT
     Route: 042
     Dates: start: 20120602, end: 20120606
  3. ENDOXAN [Suspect]
     Indication: BONE MARROW TRANSPLANT
     Route: 042
     Dates: start: 20120604, end: 20120605
  4. VFEND [Suspect]
     Indication: ASPERGILLOSIS
     Route: 048
     Dates: start: 20120530, end: 20120712
  5. ZOVIRAX [Concomitant]
     Indication: HERPES VIRUS INFECTION
     Route: 042
     Dates: start: 20120531

REACTIONS (1)
  - Acute respiratory distress syndrome [Recovered/Resolved]
